FAERS Safety Report 19553740 (Version 1)
Quarter: 2021Q3

REPORT INFORMATION
  Report Type: Spontaneous
  Country: US (occurrence: US)
  Receive Date: 20210715
  Receipt Date: 20210715
  Transmission Date: 20211014
  Serious: No
  Sender: FDA-Public Use
  Company Number: US-TELIGENT, INC-20210500046

PATIENT

DRUGS (1)
  1. GENTAMICIN SULFATE. [Suspect]
     Active Substance: GENTAMICIN SULFATE
     Indication: PSEUDOMONAS INFECTION
     Dosage: UNK
     Route: 061
     Dates: start: 20210409

REACTIONS (4)
  - Pain [Unknown]
  - Burning sensation [Unknown]
  - Drug ineffective [Unknown]
  - Diarrhoea [Unknown]
